FAERS Safety Report 18589221 (Version 1)
Quarter: 2020Q4

REPORT INFORMATION
  Report Type: Spontaneous
  Country: PL (occurrence: PL)
  Receive Date: 20201208
  Receipt Date: 20201208
  Transmission Date: 20210114
  Serious: Yes (Hospitalization)
  Sender: FDA-Public Use
  Company Number: PL-TEVA-2020-PL-1855180

PATIENT
  Age: 87 Year
  Sex: Male
  Weight: 61 kg

DRUGS (2)
  1. LEVOXA [Suspect]
     Active Substance: LEVOFLOXACIN
     Dosage: 500MILLIGRAM:INDICATION FOR USE (ICD 10): J15.8 BACTERIAL PNEUMONIA, NOT ELSEWHERE CLASSIFIED // OTH
     Route: 042
     Dates: start: 20180501, end: 20180508
  2. LEVOXA [Suspect]
     Active Substance: LEVOFLOXACIN
     Indication: PNEUMONIA BACTERIAL
     Dosage: 500MILLIGRAM
     Route: 048
     Dates: start: 20180509, end: 20180513

REACTIONS (2)
  - Tendonitis [Unknown]
  - Tendon pain [Unknown]
